FAERS Safety Report 15739316 (Version 1)
Quarter: 2018Q4

REPORT INFORMATION
  Report Type: Report from Study
  Country: US (occurrence: US)
  Receive Date: 20181219
  Receipt Date: 20181219
  Transmission Date: 20190205
  Serious: Yes (Hospitalization)
  Sender: FDA-Public Use
  Company Number: US-CELGENEUS-USA-20181005562

PATIENT
  Age: 77 Year
  Sex: Female
  Weight: 53 kg

DRUGS (52)
  1. REVLIMID [Suspect]
     Active Substance: LENALIDOMIDE
     Dosage: 15 MILLIGRAM
     Route: 048
     Dates: start: 20181127
  2. REVLIMID [Suspect]
     Active Substance: LENALIDOMIDE
     Dosage: 10 MILLIGRAM
     Route: 048
     Dates: start: 201812
  3. HALOBETASOL [Concomitant]
     Active Substance: HALOBETASOL PROPIONATE
     Indication: RASH
     Dosage: .05 PERCENT
     Route: 061
     Dates: start: 20180614
  4. BISACODYL. [Concomitant]
     Active Substance: BISACODYL
     Indication: PRODUCT USED FOR UNKNOWN INDICATION
     Dosage: 10 MILLIGRAM
     Route: 054
     Dates: start: 20181022
  5. FLUCONAZOLE. [Concomitant]
     Active Substance: FLUCONAZOLE
     Indication: PRODUCT USED FOR UNKNOWN INDICATION
     Dosage: 100 MILLIGRAM
     Route: 048
     Dates: start: 20181016, end: 20181030
  6. AFRIN [Concomitant]
     Active Substance: OXYMETAZOLINE
     Indication: RHINITIS ALLERGIC
     Route: 055
     Dates: start: 20160801
  7. FLUTICASONE. [Concomitant]
     Active Substance: FLUTICASONE
     Indication: RHINITIS ALLERGIC
     Dosage: 2 PUFFS
     Route: 055
     Dates: start: 20160128
  8. KETOCONAZOLE. [Concomitant]
     Active Substance: KETOCONAZOLE
     Indication: SPINAL CORD INJURY SACRAL
     Dosage: 2 PERCENT
     Route: 061
     Dates: start: 20180702
  9. WHITE PETROLATUM [Concomitant]
     Active Substance: PETROLATUM
     Route: 061
     Dates: start: 20181022
  10. OXYCODONE [Concomitant]
     Active Substance: OXYCODONE
     Indication: PAIN IN EXTREMITY
     Dosage: 5-10MLS
     Route: 048
     Dates: start: 20181022
  11. TRIAMCINOLONE [Concomitant]
     Active Substance: TRIAMCINOLONE
     Indication: FUNGAL INFECTION
     Route: 061
     Dates: start: 20180607, end: 20180702
  12. TRIAMCINOLONE [Concomitant]
     Active Substance: TRIAMCINOLONE
     Dosage: .3 PERCENT
     Route: 061
  13. REVLIMID [Suspect]
     Active Substance: LENALIDOMIDE
     Indication: DIFFUSE LARGE B-CELL LYMPHOMA
     Dosage: 25 MILLIGRAM
     Route: 048
     Dates: start: 20160520
  14. RITUXIMAB. [Suspect]
     Active Substance: RITUXIMAB
     Indication: DIFFUSE LARGE B-CELL LYMPHOMA
     Dosage: 600 MILLIGRAM
     Route: 065
     Dates: start: 20160520, end: 20161010
  15. ECONAZOLE NITRATE. [Concomitant]
     Active Substance: ECONAZOLE NITRATE
     Indication: TINEA PEDIS
     Route: 061
     Dates: start: 20170606
  16. MUPIROCIN. [Concomitant]
     Active Substance: MUPIROCIN
     Indication: RASH PUSTULAR
     Dosage: 4 PERCENT
     Route: 061
     Dates: start: 20180203
  17. CICALFATE [Concomitant]
     Indication: SPINAL CORD INJURY SACRAL
     Dosage: .05 PERCENT
     Route: 065
     Dates: start: 20180702
  18. CALCIUM CARBONATE-VITAMIN D [Concomitant]
     Active Substance: CALCIUM CARBONATE\VITAMIN D
     Indication: PRODUCT USED FOR UNKNOWN INDICATION
     Dosage: 600-400 MG
     Route: 048
     Dates: start: 20180925
  19. VASELIN [Concomitant]
     Indication: DRY SKIN
     Route: 061
     Dates: start: 20180802
  20. POLYETHYLENE GLYCOL [Concomitant]
     Active Substance: POLYETHYLENE GLYCOLS
     Indication: PRODUCT USED FOR UNKNOWN INDICATION
     Dosage: 1 PACKET
     Route: 048
     Dates: start: 20181022
  21. TRIAMCINOLONE [Concomitant]
     Active Substance: TRIAMCINOLONE
     Dosage: .2 PERCENT
     Route: 061
     Dates: start: 20181022
  22. VANCOMYCIN [Concomitant]
     Active Substance: VANCOMYCIN
     Indication: CELLULITIS
     Dosage: 1 GRAM
     Route: 065
     Dates: start: 20180801, end: 20180801
  23. VANCOMYCIN [Concomitant]
     Active Substance: VANCOMYCIN
     Indication: SKIN INFECTION
  24. REVLIMID [Suspect]
     Active Substance: LENALIDOMIDE
     Dosage: 10 MILLIGRAM
     Route: 048
     Dates: start: 201608
  25. PROLIA [Concomitant]
     Active Substance: DENOSUMAB
     Indication: OSTEOPOROSIS
     Route: 065
     Dates: start: 20150814
  26. TYLENOL [Concomitant]
     Active Substance: ACETAMINOPHEN
     Indication: BACK PAIN
     Dosage: 325 MILLIGRAM
     Route: 048
     Dates: start: 20170803
  27. MINERAL OIL. [Concomitant]
     Active Substance: MINERAL OIL
     Indication: SEBORRHOEIC DERMATITIS
     Route: 061
     Dates: start: 20181022
  28. IBRUTINIB [Suspect]
     Active Substance: IBRUTINIB
     Indication: DIFFUSE LARGE B-CELL LYMPHOMA
     Dosage: 56 MILLIGRAM
     Route: 048
     Dates: start: 20160520, end: 20181014
  29. KETOCONAZOLE. [Concomitant]
     Active Substance: KETOCONAZOLE
     Dosage: 2 PERCENT
     Route: 061
     Dates: start: 20181022
  30. LORATADINE. [Concomitant]
     Active Substance: LORATADINE
     Indication: HYPERSENSITIVITY
     Dosage: 10 MILLIGRAM
     Route: 048
     Dates: start: 20160801
  31. ENOXAPARIN [Concomitant]
     Active Substance: ENOXAPARIN
     Indication: PRODUCT USED FOR UNKNOWN INDICATION
     Dosage: 40 MILLIGRAM
     Route: 058
  32. FENTANYL. [Concomitant]
     Active Substance: FENTANYL
     Indication: PRODUCT USED FOR UNKNOWN INDICATION
     Route: 041
  33. DOXYCYCLINE. [Concomitant]
     Active Substance: DOXYCYCLINE
     Indication: STAPHYLOCOCCAL INFECTION
     Dosage: 200 MILLIGRAM
     Route: 048
     Dates: start: 20170825, end: 20170904
  34. IBRUTINIB [Suspect]
     Active Substance: IBRUTINIB
     Dosage: 56 MILLIGRAM
     Route: 048
     Dates: start: 20181113
  35. TYLENOL [Concomitant]
     Active Substance: ACETAMINOPHEN
     Indication: PAIN
     Dosage: 650 MILLIGRAM
     Route: 048
     Dates: start: 20180801, end: 20180804
  36. RETAINE [Concomitant]
     Active Substance: HYPROMELLOSE 2910 (4000 MPA.S)
     Indication: DRY EYE
  37. WHITE PETROLATUM [Concomitant]
     Active Substance: PETROLATUM
     Indication: DRY SKIN
     Route: 061
     Dates: start: 20180802
  38. WHITE PETROLATUM [Concomitant]
     Active Substance: PETROLATUM
     Route: 061
     Dates: start: 20181010
  39. SENNA [Concomitant]
     Active Substance: SENNA LEAF\SENNOSIDES\SENNOSIDES A AND B
     Indication: CONSTIPATION
     Dosage: 700 MILLIGRAM
     Route: 048
     Dates: start: 20181022
  40. DOXYCYCLINE. [Concomitant]
     Active Substance: DOXYCYCLINE
     Indication: CELLULITIS
     Dosage: 200 MILLIGRAM
     Route: 048
     Dates: start: 20180124, end: 20180203
  41. DOXYCYCLINE. [Concomitant]
     Active Substance: DOXYCYCLINE
     Indication: RASH PUSTULAR
     Dosage: 100 MILLIGRAM
     Route: 048
     Dates: start: 20181017, end: 20181024
  42. RETAINE [Concomitant]
     Active Substance: HYPROMELLOSE 2910 (4000 MPA.S)
     Indication: EYE INFECTION
     Dosage: 4 DROPS
     Route: 047
     Dates: start: 20170929
  43. NYSTATIN. [Concomitant]
     Active Substance: NYSTATIN
     Indication: PRODUCT USED FOR UNKNOWN INDICATION
     Dosage: 100000UNIT/GM
     Route: 061
     Dates: start: 20181010
  44. NACL [Concomitant]
     Active Substance: SODIUM CHLORIDE
     Indication: PRODUCT USED FOR UNKNOWN INDICATION
     Route: 065
  45. DOXYCYCLINE. [Concomitant]
     Active Substance: DOXYCYCLINE
     Indication: INFECTION
     Dosage: 100 MILLIGRAM
     Route: 048
     Dates: start: 20180607, end: 20180617
  46. TRIAMCINOLONE [Concomitant]
     Active Substance: TRIAMCINOLONE
     Indication: RASH PUSTULAR
     Dosage: .2 PERCENT
     Route: 061
     Dates: start: 20180802, end: 20180807
  47. VANCOMYCIN [Concomitant]
     Active Substance: VANCOMYCIN
     Indication: URINARY TRACT INFECTION
     Dosage: 750 MILLIGRAM
     Route: 041
     Dates: start: 20180803, end: 20180804
  48. REVLIMID [Suspect]
     Active Substance: LENALIDOMIDE
     Dosage: 15 MILLIGRAM
     Route: 048
     Dates: start: 201611, end: 20181010
  49. LORATADINE. [Concomitant]
     Active Substance: LORATADINE
     Indication: RHINITIS ALLERGIC
     Dosage: 10 MILLIGRAM
     Route: 048
     Dates: start: 20181004
  50. FLUCONAZOLE. [Concomitant]
     Active Substance: FLUCONAZOLE
     Dosage: 300 MILLIGRAM
     Route: 048
     Dates: start: 20181023, end: 20181030
  51. OXYCODONE [Concomitant]
     Active Substance: OXYCODONE
     Dosage: 10-15MLS
     Route: 048
     Dates: start: 20181022
  52. CALTRATE [Concomitant]
     Active Substance: CALCIUM CARBONATE
     Indication: OSTEOPOROSIS
     Route: 048
     Dates: start: 20160814

REACTIONS (1)
  - Dermatitis [Unknown]

NARRATIVE: CASE EVENT DATE: 20181014
